FAERS Safety Report 8183368-2 (Version None)
Quarter: 2012Q1

REPORT INFORMATION
  Report Type: 
  Country: None (occurrence: None)
  Receive Date: 20120305
  Receipt Date: 20120224
  Transmission Date: 20120608
  Serious: Yes (Hospitalization)
  Sender: FDA-Public Use
  Company Number: US-US-EMD SERONO, INC.-7115324

PATIENT
  Sex: Female
  Weight: 100 kg

DRUGS (12)
  1. AMITRIPTYLINE HCL [Concomitant]
  2. MELATONIN [Concomitant]
  3. BUPROPION HCL [Concomitant]
  4. POTASSIUM CHLORIDE [Concomitant]
  5. SAVELLA [Concomitant]
  6. CALCIUM+D [Concomitant]
  7. REBIF [Suspect]
     Indication: PRODUCT USED FOR UNKNOWN INDICATION
  8. SPIRONOLACTONE [Concomitant]
  9. WARFARIN SODIUM [Suspect]
  10. SENNA [Concomitant]
  11. FUROSEMIDE [Concomitant]
  12. MULTI-VITAMIN [Concomitant]

REACTIONS (6)
  - NASAL CYST [None]
  - JOINT INJURY [None]
  - ARTHRALGIA [None]
  - INTERNATIONAL NORMALISED RATIO INCREASED [None]
  - SINUSITIS [None]
  - TREMOR [None]
